FAERS Safety Report 10070214 (Version 4)
Quarter: 2014Q2

REPORT INFORMATION
  Report Type: Spontaneous
  Country: IT (occurrence: None)
  Receive Date: 20140408
  Receipt Date: 20140604
  Transmission Date: 20141212
  Serious: Yes (Hospitalization)
  Sender: FDA-Public Use
  Company Number: AUR-APL-2014-04222

PATIENT
  Age: 71 Year
  Sex: Male

DRUGS (2)
  1. METFORMIN [Suspect]
     Indication: TYPE 2 DIABETES MELLITUS
     Dosage: 1 D
     Route: 048
     Dates: start: 20090115, end: 20140115
  2. REPAGLINIDE (REPAGLINIDE) [Concomitant]

REACTIONS (5)
  - Anuria [None]
  - Metabolic acidosis [None]
  - Blood creatinine increased [None]
  - Base excess [None]
  - Haemoperfusion [None]
